FAERS Safety Report 21487199 (Version 2)
Quarter: 2022Q4

REPORT INFORMATION
  Report Type: Spontaneous
  Country: US (occurrence: US)
  Receive Date: 20221020
  Receipt Date: 20221024
  Transmission Date: 20230113
  Serious: Yes (Hospitalization, Other)
  Sender: FDA-Public Use
  Company Number: US-PFIZER INC-202201225927

PATIENT
  Age: 40 Year
  Sex: Female

DRUGS (4)
  1. METRONIDAZOLE [Interacting]
     Active Substance: METRONIDAZOLE
     Indication: Vaginal infection
     Dosage: 500 MG, 2X/DAY (1 WEEK COURSE)
  2. LITHIUM CARBONATE [Interacting]
     Active Substance: LITHIUM CARBONATE
     Dosage: 1800 MG, DAILY
  3. LEVOTHYROXINE SODIUM [Suspect]
     Active Substance: LEVOTHYROXINE SODIUM
     Dosage: 0.15 MG
  4. PROPRANOLOL [Concomitant]
     Active Substance: PROPRANOLOL HYDROCHLORIDE
     Indication: Tremor
     Dosage: 60 MG

REACTIONS (3)
  - Drug interaction [Unknown]
  - Toxicity to various agents [Recovered/Resolved]
  - Leukocytosis [Recovered/Resolved]
